FAERS Safety Report 16615416 (Version 1)
Quarter: 2019Q3

REPORT INFORMATION
  Report Type: Spontaneous
  Country: ES (occurrence: ES)
  Receive Date: 20190723
  Receipt Date: 20190723
  Transmission Date: 20191004
  Serious: No
  Sender: FDA-Public Use
  Company Number: ES-ALKEM LABORATORIES LIMITED-ES-ALKEM-2019-03651

PATIENT
  Age: 66 Year
  Sex: Female

DRUGS (4)
  1. DOXYCYCLINE. [Suspect]
     Active Substance: DOXYCYCLINE
     Indication: BENIGN FAMILIAL PEMPHIGUS
     Dosage: UNK
     Route: 065
  2. DAPSONE. [Suspect]
     Active Substance: DAPSONE
     Indication: BENIGN FAMILIAL PEMPHIGUS
     Dosage: UNK
     Route: 065
  3. MINOCYCLINE [Suspect]
     Active Substance: MINOCYCLINE HYDROCHLORIDE
     Indication: BENIGN FAMILIAL PEMPHIGUS
     Dosage: UNK
     Route: 065
  4. ACITRETIN. [Suspect]
     Active Substance: ACITRETIN
     Indication: BENIGN FAMILIAL PEMPHIGUS
     Dosage: UNK
     Route: 065

REACTIONS (1)
  - Treatment failure [Recovered/Resolved]
